FAERS Safety Report 9656864 (Version 2)
Quarter: 2013Q4

REPORT INFORMATION
  Report Type: Spontaneous
  Country: FR (occurrence: FR)
  Receive Date: 20131030
  Receipt Date: 20131119
  Transmission Date: 20140711
  Serious: Yes (Hospitalization)
  Sender: FDA-Public Use
  Company Number: FR-PFIZER INC-2013305893

PATIENT
  Age: 68 Year
  Sex: Male
  Weight: 65.5 kg

DRUGS (7)
  1. RAPAMUNE [Suspect]
     Indication: PROPHYLAXIS AGAINST TRANSPLANT REJECTION
     Dosage: 1 MG, DAILY
     Route: 048
     Dates: start: 201204, end: 20130910
  2. CELLCEPT [Suspect]
     Indication: PROPHYLAXIS AGAINST TRANSPLANT REJECTION
     Dosage: 1500 MG, DAILY
     Route: 048
     Dates: start: 200904
  3. AMLOR [Concomitant]
     Indication: HYPERTENSION
     Dosage: 5 MG, DAILY
     Route: 048
     Dates: start: 201103
  4. TAHOR [Concomitant]
     Indication: HYPERCHOLESTEROLAEMIA
     Dosage: 10 MG, DAILY
     Route: 048
     Dates: start: 201103
  5. APROVEL [Concomitant]
     Indication: HYPERTENSION
     Dosage: 300 MG, DAILY
     Route: 048
     Dates: start: 201204
  6. LASILIX [Concomitant]
     Indication: HYPERTENSION
     Dosage: 20 MG, DAILY
     Route: 048
     Dates: start: 201303
  7. AUGMENTIN [Concomitant]
     Dosage: UNK
     Dates: end: 20130813

REACTIONS (1)
  - Interstitial lung disease [Recovering/Resolving]
